FAERS Safety Report 22303537 (Version 3)
Quarter: 2024Q3

REPORT INFORMATION
  Report Type: Spontaneous
  Country: US (occurrence: US)
  Receive Date: 20230510
  Receipt Date: 20240722
  Transmission Date: 20241016
  Serious: No
  Sender: PFIZER
  Company Number: US-PFIZER INC-2020434393

PATIENT
  Age: 57 Year
  Sex: Female

DRUGS (4)
  1. PREMARIN [Suspect]
     Active Substance: ESTROGENS, CONJUGATED
     Dosage: 1 G, 2X/WEEK (AT BEDTIME )
     Route: 067
  2. PREMARIN [Suspect]
     Active Substance: ESTROGENS, CONJUGATED
     Dosage: UNK,3 TIMES A WEEK
  3. PREMARIN [Suspect]
     Active Substance: ESTROGENS, CONJUGATED
     Dosage: 0.5 G (AT BEDTIME THREE TIMES A WEEK)
  4. PREMARIN [Suspect]
     Active Substance: ESTROGENS, CONJUGATED
     Dosage: 1 G (3 TIMES A WEEK)

REACTIONS (6)
  - Vulvovaginal discomfort [Unknown]
  - Emotional disorder [Unknown]
  - Headache [Unknown]
  - Vulvovaginal pain [Unknown]
  - Vulvovaginal dryness [Unknown]
  - Off label use [Unknown]
